FAERS Safety Report 14849022 (Version 1)
Quarter: 2018Q2

REPORT INFORMATION
  Report Type: Spontaneous
  Country: US (occurrence: US)
  Receive Date: 20180504
  Receipt Date: 20180504
  Transmission Date: 20180711
  Serious: Yes (Other)
  Sender: FDA-Public Use
  Company Number: US-SA-2018SA117811

PATIENT
  Age: 57 Year
  Sex: Male

DRUGS (1)
  1. MULTAQ [Suspect]
     Active Substance: DRONEDARONE
     Dosage: DOSE:400 UNIT(S)
     Route: 048
     Dates: start: 20180209, end: 20180419

REACTIONS (3)
  - Abdominal discomfort [Recovered/Resolved]
  - Jaundice [Recovered/Resolved]
  - Acute hepatic failure [Recovered/Resolved]
